FAERS Safety Report 11139874 (Version 2)
Quarter: 2015Q4

REPORT INFORMATION
  Report Type: Spontaneous
  Country: US (occurrence: US)
  Receive Date: 20150527
  Receipt Date: 20151215
  Transmission Date: 20160304
  Serious: Yes (Other)
  Sender: FDA-Public Use
  Company Number: US-PFIZER INC-2015165281

PATIENT
  Age: 84 Year
  Sex: Male
  Weight: 68 kg

DRUGS (2)
  1. TIKOSYN [Suspect]
     Active Substance: DOFETILIDE
     Dosage: 0.125 MG, 2X/DAY (180 COUNT)
     Dates: start: 20150520
  2. TIKOSYN [Suspect]
     Active Substance: DOFETILIDE
     Indication: ATRIAL FIBRILLATION
     Dosage: 0.25 MG, 2X/DAY
     Dates: start: 2010

REACTIONS (4)
  - Arrhythmia [Unknown]
  - Circulatory collapse [Unknown]
  - Poor quality drug administered [Unknown]
  - Dizziness [Unknown]

NARRATIVE: CASE EVENT DATE: 2015
